FAERS Safety Report 15533614 (Version 1)
Quarter: 2018Q4

REPORT INFORMATION
  Report Type: Spontaneous
  Country: US (occurrence: US)
  Receive Date: 20181019
  Receipt Date: 20181019
  Transmission Date: 20190205
  Serious: No
  Sender: FDA-Public Use
  Company Number: US-DSJP-DSU-2018-104305

PATIENT
  Age: 73 Year
  Sex: Female
  Weight: 86.62 kg

DRUGS (4)
  1. ATENOLOL. [Concomitant]
     Active Substance: ATENOLOL
     Indication: HYPERTENSION
     Dosage: UNK
     Route: 048
  2. WELCHOL [Suspect]
     Active Substance: COLESEVELAM HYDROCHLORIDE
     Indication: BLOOD CHOLESTEROL INCREASED
     Dosage: 1.92 G (HALF PACKET), QD
     Route: 048
     Dates: start: 201801, end: 201801
  3. URISPAS [Concomitant]
     Active Substance: FLAVOXATE HYDROCHLORIDE
     Indication: BLADDER SPASM
     Dosage: UNK
     Route: 048
  4. COLITIS MEDICINE [Concomitant]
     Indication: COLITIS
     Dosage: UNK
     Route: 048

REACTIONS (5)
  - Myalgia [Unknown]
  - Blood creatine increased [Unknown]
  - Off label use [Recovered/Resolved]
  - Gait disturbance [Unknown]
  - Arthralgia [Unknown]

NARRATIVE: CASE EVENT DATE: 201801
